FAERS Safety Report 4270208-7 (Version None)
Quarter: 2004Q1

REPORT INFORMATION
  Report Type: 
  Country: None (occurrence: None)
  Receive Date: 20040112
  Receipt Date: 20040112
  Transmission Date: 20041129
  Serious: Yes (Hospitalization)
  Sender: FDA-Public Use
  Company Number: None

PATIENT
  Age: 67 Year
  Sex: Male

DRUGS (5)
  1. WARFARIN SODIUM [Suspect]
     Dosage: 2.5 MG QD
     Dates: start: 19950201
  2. SERTRALINE HCL [Concomitant]
  3. FUROSEMIDE [Concomitant]
  4. KCL TAB [Concomitant]
  5. FEXOFENADINE [Concomitant]

REACTIONS (2)
  - CONTUSION [None]
  - HAEMORRHAGE [None]
